FAERS Safety Report 5162983-4 (Version None)
Quarter: 2006Q4

REPORT INFORMATION
  Report Type: 
  Country: None (occurrence: None)
  Receive Date: 20061201
  Receipt Date: 20061103
  Transmission Date: 20070319
  Serious: Yes (Life-Threatening, Hospitalization, Other)
  Sender: FDA-Public Use
  Company Number: LB-ELI_LILLY_AND_COMPANY-LB200611001533

PATIENT
  Age: 30 Year
  Sex: Female

DRUGS (3)
  1. DULOXETINE HYDROCHLORIDE [Suspect]
     Indication: MAJOR DEPRESSION
     Dosage: 60 MG, DAILY (1/D)
     Route: 048
     Dates: start: 20060901, end: 20060914
  2. XANAX                                   /USA/ [Concomitant]
     Indication: GENERALISED ANXIETY DISORDER
     Dosage: 0.25 MG, EACH MORNING
  3. XANAX                                   /USA/ [Concomitant]
     Dosage: 0.5 MG, EACH EVENING

REACTIONS (7)
  - AGITATION [None]
  - DEPRESSIVE SYMPTOM [None]
  - HOSTILITY [None]
  - INSOMNIA [None]
  - IRRITABILITY [None]
  - PYLORIC STENOSIS [None]
  - SUICIDE ATTEMPT [None]
